FAERS Safety Report 6609723-7 (Version None)
Quarter: 2010Q1

REPORT INFORMATION
  Report Type: 
  Country: None (occurrence: None)
  Receive Date: 20100302
  Receipt Date: 20100118
  Transmission Date: 20100710
  Serious: Yes (Death, Hospitalization, Other)
  Sender: FDA-Public Use
  Company Number: US-BAXTER-2008BH009162

PATIENT
  Age: 6 Month
  Sex: Male
  Weight: 8 kg

DRUGS (26)
  1. HEPARIN SODIUM INJECTION [Suspect]
     Indication: CENTRAL VENOUS CATHETERISATION
     Route: 042
     Dates: start: 20070628, end: 20071101
  2. HEPARIN [Suspect]
     Indication: CENTRAL VENOUS CATHETERISATION
     Route: 042
     Dates: start: 20070801
  3. PHENOBARBITAL TAB [Concomitant]
     Indication: DRUG USE FOR UNKNOWN INDICATION
     Route: 065
  4. PEPCID [Concomitant]
     Indication: DRUG USE FOR UNKNOWN INDICATION
     Route: 065
  5. ZOFRAN [Concomitant]
     Indication: DRUG USE FOR UNKNOWN INDICATION
     Route: 065
  6. GRANULOCYTE COLONY STIMULATING FACTOR [Concomitant]
     Indication: DRUG USE FOR UNKNOWN INDICATION
     Route: 065
  7. SALINE [Concomitant]
     Indication: DRUG USE FOR UNKNOWN INDICATION
     Route: 065
  8. NYSTATIN [Concomitant]
     Indication: DRUG USE FOR UNKNOWN INDICATION
     Route: 065
  9. DEXAMETHASONE [Concomitant]
     Indication: DRUG USE FOR UNKNOWN INDICATION
     Route: 048
  10. CISPLATIN [Concomitant]
     Indication: CHEMOTHERAPY
     Route: 065
  11. VINCRISTINE [Concomitant]
     Indication: CHEMOTHERAPY
     Route: 065
  12. ETOPOSIDE [Concomitant]
     Indication: CHEMOTHERAPY
     Route: 065
  13. CYTOXAN [Concomitant]
     Indication: CHEMOTHERAPY
     Route: 065
  14. CARBOPLATIN [Concomitant]
     Indication: CHEMOTHERAPY
     Route: 065
  15. KEFLEX [Concomitant]
     Indication: WOUND INFECTION
     Route: 048
  16. ACTIVASE [Concomitant]
     Indication: MEDICAL DEVICE COMPLICATION
     Route: 042
  17. SIMILAC [Concomitant]
     Indication: DRUG USE FOR UNKNOWN INDICATION
     Route: 065
  18. CLINDAMYCIN [Concomitant]
     Indication: DRUG USE FOR UNKNOWN INDICATION
     Route: 042
  19. CYCLOPHOSPHAMIDE [Concomitant]
     Indication: DRUG USE FOR UNKNOWN INDICATION
     Route: 042
  20. FAMOTIDINE [Concomitant]
     Indication: DRUG USE FOR UNKNOWN INDICATION
     Route: 065
  21. NEUPOGEN [Concomitant]
     Indication: DRUG USE FOR UNKNOWN INDICATION
     Route: 065
  22. FUROSEMIDE [Concomitant]
     Indication: DRUG USE FOR UNKNOWN INDICATION
     Route: 065
  23. MESNA [Concomitant]
     Indication: DRUG USE FOR UNKNOWN INDICATION
     Route: 065
  24. ONDANSETRON [Concomitant]
     Indication: DRUG USE FOR UNKNOWN INDICATION
     Route: 065
  25. PENTAMIDINE ISETHIONATE [Concomitant]
     Indication: DRUG USE FOR UNKNOWN INDICATION
     Route: 065
  26. HYDRALAZINE HCL [Concomitant]
     Indication: DRUG USE FOR UNKNOWN INDICATION
     Route: 065

REACTIONS (17)
  - CYANOSIS [None]
  - DIARRHOEA [None]
  - FAILURE TO THRIVE [None]
  - HYPERTENSION [None]
  - HYPOTENSION [None]
  - INCISION SITE INFECTION [None]
  - LUNG DISORDER [None]
  - NEUTROPENIA [None]
  - PETECHIAE [None]
  - PNEUMONIA [None]
  - PYREXIA [None]
  - RENAL FAILURE [None]
  - RESPIRATORY DISTRESS [None]
  - RESPIRATORY FAILURE [None]
  - TACHYCARDIA [None]
  - TACHYPNOEA [None]
  - THROMBOCYTOPENIA [None]
